FAERS Safety Report 15296385 (Version 1)
Quarter: 2018Q3

REPORT INFORMATION
  Report Type: Spontaneous
  Country: US (occurrence: US)
  Receive Date: 20180820
  Receipt Date: 20180820
  Transmission Date: 20181010
  Serious: Yes (Other)
  Sender: FDA-Public Use
  Company Number: US-ARALEZ PHARMACEUTICALS R+D INC.-2018-ARA-002051

PATIENT
  Age: 76 Year
  Sex: Male
  Weight: 72.11 kg

DRUGS (5)
  1. QUETIAPINE. [Suspect]
     Active Substance: QUETIAPINE
     Indication: AGGRESSION
     Dosage: 25 MG, BID
     Route: 048
     Dates: start: 20180815
  2. METOPROLOL SUCCINATE. [Suspect]
     Active Substance: METOPROLOL SUCCINATE
     Indication: PRODUCT USED FOR UNKNOWN INDICATION
     Dosage: 25 MG, BID
     Route: 048
     Dates: start: 201807
  3. QUETIAPINE. [Suspect]
     Active Substance: QUETIAPINE
     Dosage: 25 MG, QD
     Route: 048
     Dates: start: 20180723, end: 20180814
  4. LOSARTAN. [Concomitant]
     Active Substance: LOSARTAN
     Indication: HYPERTENSION
     Route: 048
  5. ARICEPT [Concomitant]
     Active Substance: DONEPEZIL HYDROCHLORIDE
     Indication: AMNESIA
     Dosage: UNK
     Route: 048
     Dates: start: 2015

REACTIONS (4)
  - Anger [Recovered/Resolved]
  - Inappropriate schedule of drug administration [Unknown]
  - Intentional dose omission [Unknown]
  - Psychotic symptom [Recovered/Resolved]

NARRATIVE: CASE EVENT DATE: 201807
